FAERS Safety Report 7375257-8 (Version None)
Quarter: 2011Q1

REPORT INFORMATION
  Report Type: 
  Country: None (occurrence: None)
  Receive Date: 20110325
  Receipt Date: 20110323
  Transmission Date: 20110831
  Serious: Yes (Other)
  Sender: FDA-Public Use
  Company Number: US-ROCHE-767043

PATIENT
  Sex: Male

DRUGS (1)
  1. ACCUTANE [Suspect]
     Route: 065
     Dates: start: 20070101, end: 20090101

REACTIONS (2)
  - INTESTINAL FUNCTIONAL DISORDER [None]
  - GASTROINTESTINAL DISORDER [None]
